FAERS Safety Report 13612059 (Version 1)
Quarter: 2017Q2

REPORT INFORMATION
  Report Type: Report from Study
  Country: US (occurrence: US)
  Receive Date: 20170605
  Receipt Date: 20170605
  Transmission Date: 20170830
  Serious: Yes (Other)
  Sender: FDA-Public Use
  Company Number: US-ROCHE-1738559

PATIENT
  Age: 57 Year
  Sex: Male
  Weight: 95.7 kg

DRUGS (14)
  1. VEMURAFENIB [Suspect]
     Active Substance: VEMURAFENIB
     Indication: METASTATIC MALIGNANT MELANOMA
     Dosage: COMBINATION VEMURAFENIB/ MOST RECENT DOSE: 05/APR/2016
     Route: 048
     Dates: start: 20160322
  2. PURE BAKING SODA [Concomitant]
     Active Substance: SODIUM BICARBONATE
     Indication: DYSPEPSIA
     Dosage: 1 OTHER
     Route: 048
     Dates: start: 20160309
  3. COBIMETINIB [Suspect]
     Active Substance: COBIMETINIB
     Indication: METASTATIC MALIGNANT MELANOMA
     Dosage: RUN IN COBIMETINIB
     Route: 048
     Dates: start: 20160217
  4. ASPIRIN. [Concomitant]
     Active Substance: ASPIRIN
     Route: 048
     Dates: start: 2013
  5. IBUPROFEN. [Concomitant]
     Active Substance: IBUPROFEN
     Indication: HEADACHE
     Route: 048
     Dates: end: 1980
  6. BENADRYL [Concomitant]
     Active Substance: DIPHENHYDRAMINE HYDROCHLORIDE
     Indication: RASH MACULAR
     Route: 048
     Dates: start: 20160228, end: 20160309
  7. MOTRIN [Concomitant]
     Active Substance: IBUPROFEN
     Indication: ARTHRALGIA
     Route: 048
     Dates: start: 20160322
  8. IBUPROFEN. [Concomitant]
     Active Substance: IBUPROFEN
     Indication: ARTHRALGIA
     Route: 048
     Dates: start: 1980
  9. HYDROXYZINE HCL [Concomitant]
     Active Substance: HYDROXYZINE HYDROCHLORIDE
     Indication: PRURITUS
     Route: 048
     Dates: start: 20160229, end: 20160306
  10. IBUPROFEN. [Concomitant]
     Active Substance: IBUPROFEN
     Indication: PYREXIA
  11. CALADRYL CLEAR [Concomitant]
     Active Substance: PRAMOXINE HYDROCHLORIDE\ZINC ACETATE
     Indication: PROPHYLAXIS
     Dosage: 1 OTHER
     Route: 061
     Dates: start: 20160309, end: 20160405
  12. ATEZOLIZUMAB [Suspect]
     Active Substance: ATEZOLIZUMAB
     Indication: METASTATIC MALIGNANT MELANOMA
     Dosage: DATE OF MOST RECENT DOSE PRIOR TO THE ELEVATED AST ONSET: 22/MAR/2016
     Route: 042
     Dates: start: 20160322
  13. VEMURAFENIB [Suspect]
     Active Substance: VEMURAFENIB
     Indication: METASTATIC MALIGNANT MELANOMA
     Dosage: RUN IN VEMURAFENIB
     Route: 048
     Dates: start: 20160218
  14. COBIMETINIB [Suspect]
     Active Substance: COBIMETINIB
     Indication: METASTATIC MALIGNANT MELANOMA
     Dosage: COMBINATION COBIMETINIB/ MOST RECENT DOSE: 05/APR/2016
     Route: 048
     Dates: start: 20160322

REACTIONS (3)
  - Alanine aminotransferase increased [Recovered/Resolved]
  - Aspartate aminotransferase increased [Recovered/Resolved]
  - Autoimmune hepatitis [Recovered/Resolved]

NARRATIVE: CASE EVENT DATE: 20160405
